FAERS Safety Report 8805897 (Version 1)
Quarter: 2012Q4

REPORT INFORMATION
  Report Type: Spontaneous
  Country: US (occurrence: None)
  Receive Date: 20120918
  Receipt Date: 20120918
  Transmission Date: 20130627
  Serious: Yes (Other)
  Sender: FDA-Public Use
  Company Number: ADR-2012-01707

PATIENT
  Sex: Female

DRUGS (3)
  1. BACLOFEN INTRATHECAL (BACLOFEN INJECTION) [Suspect]
     Indication: PAIN
  2. BACLOFEN INTRATHECAL (BACLOFEN INJECTION) [Suspect]
     Indication: FAILED BACK SURGERY SYNDROME
  3. FENTANYL [Concomitant]

REACTIONS (9)
  - No therapeutic response [None]
  - Sciatica [None]
  - Ear pain [None]
  - Neck pain [None]
  - Musculoskeletal pain [None]
  - Gait disturbance [None]
  - Crying [None]
  - Complex regional pain syndrome [None]
  - Skin discolouration [None]
